FAERS Safety Report 23217957 (Version 1)
Quarter: 2023Q4

REPORT INFORMATION
  Report Type: Spontaneous
  Country: US (occurrence: US)
  Receive Date: 20231122
  Receipt Date: 20231122
  Transmission Date: 20240110
  Serious: No
  Sender: FDA-Public Use
  Company Number: US-INCYTE CORPORATION-2023IN012057

PATIENT

DRUGS (1)
  1. JAKAFI [Suspect]
     Active Substance: RUXOLITINIB
     Indication: Polycythaemia vera
     Dosage: 15 MILLIGRAM, BID, TAKING MEDICATION DAILY, EXCEPT ON MAN, WED, AND FRI SHE WILL TAKE TABLETS.
     Route: 048
     Dates: start: 20220415

REACTIONS (1)
  - Laboratory test abnormal [Unknown]
